FAERS Safety Report 9239617 (Version 1)
Quarter: 2013Q2

REPORT INFORMATION
  Report Type: Report from Study
  Country: US (occurrence: US)
  Receive Date: 20130418
  Receipt Date: 20130418
  Transmission Date: 20140414
  Serious: No
  Sender: FDA-Public Use
  Company Number: US-009507513-1207USA012318

PATIENT
  Age: 53 Year
  Sex: Female

DRUGS (6)
  1. VICTRELIS [Suspect]
     Dosage: 800 MG, TID
     Route: 048
  2. PEGASYS [Suspect]
     Route: 058
  3. RIBASPHERE [Suspect]
     Dosage: 200 MG, UNK
     Route: 048
  4. SERTRALINE HYDROCHLORIDE [Concomitant]
  5. IBUPROFEN [Concomitant]
  6. GOODYS [Concomitant]

REACTIONS (6)
  - Nausea [Unknown]
  - Fatigue [Unknown]
  - Influenza like illness [Unknown]
  - Diarrhoea [Unknown]
  - Decreased appetite [Unknown]
  - Dysgeusia [Unknown]
